FAERS Safety Report 16660855 (Version 1)
Quarter: 2019Q3

REPORT INFORMATION
  Report Type: Spontaneous
  Country: GB (occurrence: GB)
  Receive Date: 20190801
  Receipt Date: 20190801
  Transmission Date: 20191004
  Serious: Yes (Hospitalization, Disabling, Other)
  Sender: FDA-Public Use
  Company Number: None

PATIENT
  Age: 20 Year
  Sex: Male
  Weight: 70 kg

DRUGS (4)
  1. SALBUTAMOL INHALER [Concomitant]
     Active Substance: ALBUTEROL
  2. DERMOVATE [Suspect]
     Active Substance: CLOBETASOL
  3. ELOCON [Suspect]
     Active Substance: MOMETASONE FUROATE
     Indication: ECZEMA
     Route: 061
     Dates: start: 20120806, end: 20140404
  4. BETNOVATE [Suspect]
     Active Substance: BETAMETHASONE

REACTIONS (6)
  - Crying [None]
  - Weight decreased [None]
  - Pain of skin [None]
  - Dermatitis [None]
  - Erythema [None]
  - Pruritus [None]

NARRATIVE: CASE EVENT DATE: 20140804
